FAERS Safety Report 11273927 (Version 2)
Quarter: 2016Q1

REPORT INFORMATION
  Report Type: Spontaneous
  Country: US (occurrence: US)
  Receive Date: 20150715
  Receipt Date: 20160202
  Transmission Date: 20160525
  Serious: No
  Sender: FDA-Public Use
  Company Number: US-PFIZER INC-2015231114

PATIENT
  Age: 85 Year
  Sex: Female
  Weight: 53.51 kg

DRUGS (4)
  1. IBRANCE [Suspect]
     Active Substance: PALBOCICLIB
     Indication: BREAST CANCER METASTATIC
     Dosage: 125 MG, 1X/DAY (21 DAYS ON AND 7 DAYS OFF)
     Route: 048
     Dates: start: 201504
  2. HYDRALAZINE [Concomitant]
     Active Substance: HYDRALAZINE HYDROCHLORIDE
     Indication: CARDIAC DISORDER
     Dosage: 25 MG, 2X/DAY
  3. FEMARA [Concomitant]
     Active Substance: LETROZOLE
     Dosage: 2.5 MG, DAILY
     Route: 048
     Dates: start: 201504
  4. CRESTOR [Concomitant]
     Active Substance: ROSUVASTATIN CALCIUM
     Dosage: 20 MG, UNK

REACTIONS (5)
  - Hyperkeratosis [Unknown]
  - Skin exfoliation [Unknown]
  - Dacryostenosis acquired [Unknown]
  - Eye discharge [Not Recovered/Not Resolved]
  - Lacrimation increased [Not Recovered/Not Resolved]
